FAERS Safety Report 8150805-9 (Version None)
Quarter: 2012Q1

REPORT INFORMATION
  Report Type: 
  Country: None (occurrence: None)
  Receive Date: 20120220
  Receipt Date: 20120214
  Transmission Date: 20120608
  Serious: Yes (Hospitalization)
  Sender: FDA-Public Use
  Company Number: GB-SANOFI-AVENTIS-2011SA073160

PATIENT
  Age: 60 Year
  Sex: Female
  Weight: 85 kg

DRUGS (2)
  1. TRASTUZUMAB [Suspect]
     Route: 042
     Dates: start: 20110819
  2. DOCETAXEL [Suspect]
     Route: 042
     Dates: start: 20110819

REACTIONS (1)
  - HYPOKALAEMIA [None]
